FAERS Safety Report 16168960 (Version 2)
Quarter: 2019Q2

REPORT INFORMATION
  Report Type: Spontaneous
  Country: US (occurrence: US)
  Receive Date: 20190408
  Receipt Date: 20190430
  Transmission Date: 20190711
  Serious: No
  Sender: FDA-Public Use
  Company Number: US-HTU-2019US018498

PATIENT
  Sex: Male

DRUGS (2)
  1. CLOBETASOL PROPIONATE. [Concomitant]
     Active Substance: CLOBETASOL PROPIONATE
  2. VALCHLOR [Suspect]
     Active Substance: MECHLORETHAMINE
     Indication: CUTANEOUS T-CELL LYMPHOMA
     Dosage: UNK, ONCE DAILY
     Route: 061
     Dates: start: 20160630

REACTIONS (3)
  - Skin burning sensation [Recovered/Resolved]
  - Therapeutic product effect decreased [Recovered/Resolved]
  - Rash erythematous [Recovered/Resolved]
